FAERS Safety Report 6898610-5 (Version None)
Quarter: 2010Q3

REPORT INFORMATION
  Report Type: 
  Country: None (occurrence: None)
  Receive Date: 20100802
  Receipt Date: 20071106
  Transmission Date: 20110219
  Serious: No
  Sender: FDA-Public Use
  Company Number: US-PFIZER INC-2007093731

PATIENT
  Age: 35 Year
  Sex: Female

DRUGS (4)
  1. LYRICA [Suspect]
  2. PERCOCET [Concomitant]
  3. SOMA [Concomitant]
  4. CELEXA [Concomitant]

REACTIONS (1)
  - DRUG SCREEN FALSE POSITIVE [None]
